FAERS Safety Report 6217168-7 (Version None)
Quarter: 2009Q2

REPORT INFORMATION
  Report Type: 
  Country: None (occurrence: None)
  Receive Date: 20090608
  Receipt Date: 20070525
  Transmission Date: 20091009
  Serious: Yes (Other)
  Sender: FDA-Public Use
  Company Number: US-ASTRAZENECA-2006UW08261

PATIENT
  Age: 58 Year
  Sex: Female
  Weight: 73 kg

DRUGS (13)
  1. SEROQUEL [Suspect]
     Indication: AFFECTIVE DISORDER
     Dosage: 300-900 MG
     Route: 048
     Dates: start: 20030910
  2. SEROQUEL [Suspect]
     Indication: ANXIETY
     Dosage: 300-900 MG
     Route: 048
     Dates: start: 20030910
  3. SEROQUEL [Suspect]
     Route: 048
  4. SEROQUEL [Suspect]
     Route: 048
  5. GEODON [Concomitant]
  6. LITHIUM [Concomitant]
  7. AMBIEN [Concomitant]
  8. DIAZEPAM [Concomitant]
  9. EFFEXOR [Concomitant]
  10. VALIUM [Concomitant]
     Dates: start: 20030910
  11. SINGULAIR [Concomitant]
     Route: 048
     Dates: start: 20030910
  12. TRAZODONE HCL [Concomitant]
     Route: 048
     Dates: start: 19921210
  13. VISTARIL [Concomitant]
     Dosage: 25-50 MG
     Route: 048
     Dates: start: 20060601

REACTIONS (2)
  - DIABETES MELLITUS [None]
  - DIABETIC NEUROPATHY [None]
